FAERS Safety Report 16344174 (Version 2)
Quarter: 2019Q2

REPORT INFORMATION
  Report Type: Spontaneous
  Country: JP (occurrence: JP)
  Receive Date: 20190522
  Receipt Date: 20190624
  Transmission Date: 20190711
  Serious: Yes (Disabling)
  Sender: FDA-Public Use
  Company Number: JP-ELI_LILLY_AND_COMPANY-JP201905007416

PATIENT
  Sex: Female
  Weight: 43 kg

DRUGS (7)
  1. DOCETAXEL. [Suspect]
     Active Substance: DOCETAXEL
     Indication: LUNG ADENOCARCINOMA RECURRENT
     Dosage: 84 DOSAGE FORM, CYCLICAL
     Route: 041
     Dates: start: 20181205, end: 20181205
  2. DOCETAXEL. [Suspect]
     Active Substance: DOCETAXEL
     Dosage: 60 DOSAGE FORM, CYCLICAL
     Route: 041
     Dates: start: 20190319, end: 20190409
  3. PEGFILGRASTIM [Concomitant]
     Active Substance: PEGFILGRASTIM
     Indication: PROPHYLAXIS
     Dosage: 3.6 MG, CYCLICAL
     Route: 042
     Dates: start: 201812, end: 20190411
  4. CYRAMZA [Suspect]
     Active Substance: RAMUCIRUMAB
     Indication: LUNG ADENOCARCINOMA RECURRENT
     Dosage: 430 DOSAGE FORM, CYCLICAL
     Route: 041
     Dates: start: 20181205, end: 20190219
  5. DOCETAXEL. [Suspect]
     Active Substance: DOCETAXEL
     Dosage: 80 DOSAGE FORM, CYCLICAL
     Route: 041
     Dates: start: 20181226, end: 20190219
  6. DECADRON [Concomitant]
     Active Substance: DEXAMETHASONE
     Indication: PROPHYLAXIS OF NAUSEA AND VOMITING
     Dosage: 4 MG, CYCLICAL
     Route: 048
     Dates: start: 20181225, end: 20190410
  7. CYRAMZA [Suspect]
     Active Substance: RAMUCIRUMAB
     Dosage: 320 DOSAGE FORM, CYCLICAL
     Route: 041
     Dates: start: 20190319, end: 20190409

REACTIONS (1)
  - Myelodysplastic syndrome [Not Recovered/Not Resolved]

NARRATIVE: CASE EVENT DATE: 20190423
